FAERS Safety Report 8617209-3 (Version None)
Quarter: 2012Q3

REPORT INFORMATION
  Report Type: 
  Country: None (occurrence: None)
  Receive Date: 20120823
  Receipt Date: 20120815
  Transmission Date: 20120928
  Serious: No
  Sender: FDA-Public Use
  Company Number: US-AMGEN-USASP2012045830

PATIENT
  Age: 56 Year
  Sex: Female

DRUGS (9)
  1. KLOR-CON [Concomitant]
  2. BOCEPREVIR [Suspect]
     Indication: HEPATITIS C
     Dosage: 4 DF, TID
     Route: 048
  3. IBUPROFEN [Concomitant]
  4. RIBASPHERE [Suspect]
     Indication: HEPATITIS C
     Dosage: 1200 MG, QD
     Dates: start: 20111220
  5. FUROSEMIDE [Concomitant]
  6. PEGASYS [Suspect]
     Dosage: 90 MUG, QWK
  7. NEUPOGEN [Suspect]
     Indication: PRODUCT USED FOR UNKNOWN INDICATION
     Dosage: UNK
  8. PEGASYS [Suspect]
     Indication: HEPATITIS C
     Dosage: 90 MUG, QWK
     Dates: start: 20111220
  9. AMLODIPINE [Concomitant]

REACTIONS (6)
  - ANAEMIA [None]
  - DYSPNOEA [None]
  - WEIGHT DECREASED [None]
  - VOMITING [None]
  - WHITE BLOOD CELL COUNT DECREASED [None]
  - HEADACHE [None]
